FAERS Safety Report 9250782 (Version 1)
Quarter: 2013Q2

REPORT INFORMATION
  Report Type: Spontaneous
  Country: US (occurrence: US)
  Receive Date: 20130424
  Receipt Date: 20130424
  Transmission Date: 20140414
  Serious: Yes (Hospitalization)
  Sender: FDA-Public Use
  Company Number: US-BAYER-2013-050244

PATIENT
  Age: 43 Year
  Sex: Female

DRUGS (8)
  1. OCELLA [Suspect]
  2. CALCIUM D [Concomitant]
  3. VICODIN [Concomitant]
  4. MAGNESIUM [Concomitant]
  5. MULTIVITAMINS [Concomitant]
  6. NAPROXEN [Concomitant]
  7. VITAMIN B12 [Concomitant]
  8. FISH OIL [Concomitant]

REACTIONS (2)
  - Deep vein thrombosis [Recovering/Resolving]
  - Pulmonary embolism [None]
